FAERS Safety Report 7161356-2 (Version None)
Quarter: 2010Q4

REPORT INFORMATION
  Report Type: 
  Country: None (occurrence: None)
  Receive Date: 20101123
  Receipt Date: 20100902
  Transmission Date: 20110411
  Serious: Yes (Hospitalization)
  Sender: FDA-Public Use
  Company Number: 016425

PATIENT
  Sex: Female
  Weight: 49.9 kg

DRUGS (11)
  1. CIMZIA [Suspect]
     Indication: CROHN'S DISEASE
     Dosage: (400 MG 1X/4 WEEKS SUBCUTANEOUS)
     Route: 058
     Dates: start: 20091023
  2. PREDNISONE [Concomitant]
  3. FOLIC ACID W/VITAMINS NOS [Concomitant]
  4. ZYRTEC-D 12 HOUR [Concomitant]
  5. ZOLOFT [Concomitant]
  6. TRAZODONE [Concomitant]
  7. PREMARIN [Concomitant]
  8. ZOLEDRONIC ACID [Concomitant]
  9. IMURAN [Concomitant]
  10. METHOTREXATE [Concomitant]
  11. BIAXIN [Concomitant]

REACTIONS (4)
  - ASTHENIA [None]
  - CROHN'S DISEASE [None]
  - FEELING JITTERY [None]
  - SINUSITIS [None]
